FAERS Safety Report 8971637 (Version 2)
Quarter: 2013Q1

REPORT INFORMATION
  Report Type: Spontaneous
  Country: DE (occurrence: DE)
  Receive Date: 20121217
  Receipt Date: 20130312
  Transmission Date: 20140127
  Serious: Yes (Other)
  Sender: FDA-Public Use
  Company Number: DE-ROCHE-1169988

PATIENT
  Sex: Female

DRUGS (11)
  1. LUCENTIS [Suspect]
     Indication: AGE-RELATED MACULAR DEGENERATION
     Route: 050
     Dates: start: 20120404
  2. LUCENTIS [Suspect]
     Route: 050
     Dates: start: 201205
  3. LUCENTIS [Suspect]
     Route: 050
     Dates: start: 201206
  4. LUCENTIS [Suspect]
     Route: 050
     Dates: start: 201207
  5. LUCENTIS [Suspect]
     Route: 050
     Dates: start: 201208
  6. LUCENTIS [Suspect]
     Route: 050
     Dates: start: 201209
  7. LUCENTIS [Suspect]
     Route: 050
     Dates: start: 201210
  8. LUCENTIS [Suspect]
     Route: 050
     Dates: start: 201211
  9. LUCENTIS [Suspect]
     Route: 050
     Dates: start: 20121211
  10. LUCENTIS [Suspect]
     Route: 050
     Dates: start: 20130226
  11. OPIPRAMOL [Concomitant]
     Route: 065
     Dates: start: 201212

REACTIONS (5)
  - Gait disturbance [Recovering/Resolving]
  - Muscular weakness [Recovering/Resolving]
  - Myalgia [Recovering/Resolving]
  - Hypoaesthesia [Recovering/Resolving]
  - Inappropriate schedule of drug administration [Unknown]
